FAERS Safety Report 15951175 (Version 2)
Quarter: 2019Q1

REPORT INFORMATION
  Report Type: Report from Study
  Country: CO (occurrence: CO)
  Receive Date: 20190212
  Receipt Date: 20190220
  Transmission Date: 20190417
  Serious: Yes (Death, Hospitalization, Other)
  Sender: FDA-Public Use
  Company Number: CO-BAYER-2019-021124

PATIENT
  Age: 62 Year
  Sex: Female

DRUGS (1)
  1. BETAFERON [Suspect]
     Active Substance: INTERFERON BETA-1B
     Indication: MULTIPLE SCLEROSIS
     Dosage: 1 ML, QOD
     Dates: start: 20070716

REACTIONS (6)
  - Peripheral swelling [Recovering/Resolving]
  - Hepatic cirrhosis [Fatal]
  - Fluid retention [Unknown]
  - Inflammation [Unknown]
  - Laparotomy [Unknown]
  - Gastritis [Unknown]

NARRATIVE: CASE EVENT DATE: 2019
